FAERS Safety Report 8418844-8 (Version None)
Quarter: 2012Q2

REPORT INFORMATION
  Report Type: 
  Country: None (occurrence: None)
  Receive Date: 20120530
  Receipt Date: 20120524
  Transmission Date: 20120825
  Serious: Yes (Hospitalization)
  Sender: FDA-Public Use
  Company Number: 2012SP023083

PATIENT
  Age: 77 Year
  Sex: Male
  Weight: 70 kg

DRUGS (1)
  1. TEMOZOLOMIDE [Suspect]
     Indication: GLIOBLASTOMA MULTIFORME
     Dosage: 130 MG;QD;PO
     Route: 048
     Dates: start: 20120410, end: 20120417

REACTIONS (3)
  - GENERAL PHYSICAL HEALTH DETERIORATION [None]
  - GLIOBLASTOMA MULTIFORME [None]
  - NEOPLASM PROGRESSION [None]
